FAERS Safety Report 16121321 (Version 1)
Quarter: 2019Q1

REPORT INFORMATION
  Report Type: Spontaneous
  Country: FR (occurrence: FR)
  Receive Date: 20190327
  Receipt Date: 20190327
  Transmission Date: 20190418
  Serious: Yes (Other)
  Sender: FDA-Public Use
  Company Number: FR-TEVA-2019-FR-1029238

PATIENT
  Age: 36 Year
  Sex: Female
  Weight: 67.6 kg

DRUGS (16)
  1. MIDAZOLAM [Concomitant]
     Active Substance: MIDAZOLAM HYDROCHLORIDE
  2. IMIPENEM MONOHYDRATE [Concomitant]
  3. AMBISOME [Suspect]
     Active Substance: AMPHOTERICIN B
     Indication: BRONCHOPULMONARY ASPERGILLOSIS
     Route: 041
     Dates: start: 20190211, end: 20190212
  4. ALBUMINE (TANNATE D^) [Concomitant]
  5. VALACICLOVIR [Concomitant]
     Active Substance: VALACYCLOVIR HYDROCHLORIDE
  6. CYTARABINE. [Suspect]
     Active Substance: CYTARABINE
     Indication: ACUTE LYMPHOCYTIC LEUKAEMIA
     Route: 041
     Dates: start: 20190204, end: 20190209
  7. SUFENTANIL [Concomitant]
     Active Substance: SUFENTANIL
  8. CILASTATINE SODIQUE [Concomitant]
     Active Substance: CILASTATIN SODIUM
  9. VANCOMYCINE SANDOZ [Suspect]
     Active Substance: VANCOMYCIN
     Indication: SEPTIC SHOCK
     Route: 041
     Dates: start: 20190107, end: 20190210
  10. DAPTOMYCINE [Concomitant]
     Active Substance: DAPTOMYCIN
  11. LINEZOLIDE KABI [Suspect]
     Active Substance: LINEZOLID
     Indication: SEPTIC SHOCK
     Route: 041
     Dates: start: 20190210, end: 20190211
  12. INSULINE [Concomitant]
     Active Substance: INSULIN NOS
  13. HYDROCORTISONE. [Concomitant]
     Active Substance: HYDROCORTISONE
  14. VORICONAZOLE. [Suspect]
     Active Substance: VORICONAZOLE
     Indication: BRONCHOPULMONARY ASPERGILLOSIS
     Route: 041
     Dates: start: 20190111, end: 20190211
  15. ERYTHROCINE [Suspect]
     Active Substance: ERYTHROMYCIN
     Indication: SEPTIC SHOCK
     Route: 041
     Dates: start: 20190209, end: 20190210
  16. CLOFARABINE. [Suspect]
     Active Substance: CLOFARABINE
     Indication: ACUTE LYMPHOCYTIC LEUKAEMIA
     Route: 041
     Dates: start: 20190204, end: 20190209

REACTIONS (1)
  - Hypertransaminasaemia [Recovered/Resolved]

NARRATIVE: CASE EVENT DATE: 20190212
